FAERS Safety Report 5871226-5 (Version None)
Quarter: 2008Q3

REPORT INFORMATION
  Report Type: 
  Country: None (occurrence: None)
  Receive Date: 20080902
  Receipt Date: 20080825
  Transmission Date: 20090109
  Serious: Yes (Death)
  Sender: FDA-Public Use
  Company Number: 2008JP003876

PATIENT
  Age: 46 Year
  Sex: Male
  Weight: 51 kg

DRUGS (13)
  1. PROGRAF [Suspect]
     Indication: RENAL TRANSPLANT
     Dosage: 0.2 MG/KG, /D
  2. PROGRAF [Suspect]
     Indication: RENAL TRANSPLANT
     Dosage: 0.03 MG/KG, /D, IV NOS; 0.2 MG/KG,/D
     Route: 042
  3. MYCOPHENOLATE MOFETIL [Concomitant]
  4. PREDNISOLONE [Concomitant]
  5. SIMULECT [Concomitant]
  6. METHYLPREDNISOLONE [Concomitant]
  7. DESOGESTREL (DESOGESTREL) [Concomitant]
  8. GANCICLOVIR [Concomitant]
  9. CICLOSPORIN FORMULATION [Concomitant]
  10. MIZORIBINE (MIZORIBINE) [Concomitant]
  11. 5-FU (FLUOROURACIL) INJECTION [Concomitant]
  12. TS-1 (AMINOHIPPURATE SODIUM, GIMERACIL, TEGAFUR) [Concomitant]
  13. IRINOTECAN HCL [Concomitant]

REACTIONS (15)
  - ANAEMIA [None]
  - CARDIO-RESPIRATORY ARREST [None]
  - CIRCULATORY COLLAPSE [None]
  - CYTOMEGALOVIRUS ANTIGEN POSITIVE [None]
  - DEHYDRATION [None]
  - DIARRHOEA [None]
  - ENTEROCOLITIS FUNGAL [None]
  - HYPERKALAEMIA [None]
  - ILEUS [None]
  - LARGE INTESTINE CARCINOMA [None]
  - MALAISE [None]
  - METASTASES TO LIVER [None]
  - MUCOSAL EROSION [None]
  - MUCOSAL HAEMORRHAGE [None]
  - PULMONARY OEDEMA [None]
